FAERS Safety Report 22163829 (Version 6)
Quarter: 2024Q2

REPORT INFORMATION
  Report Type: Other
  Country: CN (occurrence: None)
  Receive Date: 20230401
  Receipt Date: 20240610
  Transmission Date: 20240716
  Serious: Yes (Hospitalization, Other)
  Sender: FDA-Public Use
  Company Number: CN-ROCHE-2215953

PATIENT
  Age: 59 Year
  Sex: Male
  Weight: 60 kg

DRUGS (4)
  1. AVASTIN [Suspect]
     Active Substance: BEVACIZUMAB
     Indication: Colon cancer
     Route: 041
     Dates: start: 20170303
  2. AVASTIN [Suspect]
     Active Substance: BEVACIZUMAB
     Route: 041
     Dates: start: 20200723, end: 20210204
  3. AVASTIN [Suspect]
     Active Substance: BEVACIZUMAB
     Route: 041
     Dates: start: 202104, end: 20230209
  4. AVASTIN [Suspect]
     Active Substance: BEVACIZUMAB
     Route: 041
     Dates: end: 20240502

REACTIONS (16)
  - Appendicitis [Recovered/Resolved]
  - Intestinal polypectomy [Unknown]
  - Large intestinal polypectomy [Unknown]
  - Inguinal hernia [Recovered/Resolved]
  - Pyrexia [Unknown]
  - Intestinal polyp [Unknown]
  - Nasopharyngitis [Unknown]
  - Epistaxis [Unknown]
  - Nasopharyngitis [Unknown]
  - Lung opacity [Not Recovered/Not Resolved]
  - Gastrointestinal wall thickening [Not Recovered/Not Resolved]
  - Abdominal pain [Unknown]
  - Abdominal distension [Unknown]
  - Periodontitis [Unknown]
  - Loose tooth [Unknown]
  - Tooth extraction [Unknown]

NARRATIVE: CASE EVENT DATE: 20180208
